FAERS Safety Report 14695712 (Version 1)
Quarter: 2018Q1

REPORT INFORMATION
  Report Type: Spontaneous
  Country: US (occurrence: US)
  Receive Date: 20180328
  Receipt Date: 20180328
  Transmission Date: 20180509
  Serious: No
  Sender: FDA-Public Use
  Company Number: None

PATIENT
  Age: 76 Year
  Sex: Female
  Weight: 58.5 kg

DRUGS (3)
  1. EXEMESTANE. [Concomitant]
     Active Substance: EXEMESTANE
  2. AFINITOR [Suspect]
     Active Substance: EVEROLIMUS
     Indication: BREAST CANCER
     Route: 048
     Dates: start: 20180125
  3. METRONIDAZOLE. [Concomitant]
     Active Substance: METRONIDAZOLE

REACTIONS (3)
  - Paraesthesia [None]
  - Erythema [None]
  - Pruritus [None]

NARRATIVE: CASE EVENT DATE: 20180327
